FAERS Safety Report 9171428 (Version 5)
Quarter: 2013Q2

REPORT INFORMATION
  Report Type: Report from Study
  Country: GB (occurrence: GB)
  Receive Date: 20130319
  Receipt Date: 20130528
  Transmission Date: 20140414
  Serious: Yes (Hospitalization)
  Sender: FDA-Public Use
  Company Number: GB-ROCHE-1200832

PATIENT
  Age: 40 Year
  Sex: Female

DRUGS (12)
  1. BLINDED PERTUZUMAB [Suspect]
     Indication: HER-2 POSITIVE BREAST CANCER
     Dosage: LAST DOSE PRIOR TO NAUSEA, FEBRILE NEUTROPENIA, HYPOMAGNESEMIA AND HYPOKALEMIA :22/MAR/2013
     Route: 042
     Dates: start: 20130301
  2. TRASTUZUMAB [Suspect]
     Indication: HER-2 POSITIVE BREAST CANCER
     Route: 042
  3. TRASTUZUMAB [Suspect]
     Dosage: LAST DOSE PRIOR TO NAUSEA, FEBRILE NEUTROPENIA, HYPOMAGNESEMIA AND HYPOKALEMIA :22/MAR/2013
     Route: 042
     Dates: start: 20130301
  4. DOCETAXOL [Suspect]
     Indication: HER-2 POSITIVE BREAST CANCER
     Route: 065
     Dates: start: 20130301, end: 20130301
  5. CARBOPLATIN [Suspect]
     Indication: HER-2 POSITIVE BREAST CANCER
     Route: 065
     Dates: start: 20130301, end: 20130301
  6. CARBOPLATIN [Suspect]
     Dosage: DOSE:6 AUC, LAST DOSE PRIOR TO NAUSEA, FEBRILE NEUTROPENIA, HYPOMAGNESEMIA AND HYPOKALEMIA :22/MAR/2
     Route: 042
     Dates: start: 20130301
  7. PARACETAMOL [Concomitant]
  8. LANSOPRAZOLE [Concomitant]
  9. LOPERAMIDE [Concomitant]
  10. CALCICHEW D3 [Concomitant]
  11. MAGNESIUM ASPARTATE [Concomitant]
  12. OMEPRAZOLE [Concomitant]
     Route: 065
     Dates: start: 20130310

REACTIONS (6)
  - Neutropenic sepsis [Not Recovered/Not Resolved]
  - Nausea [Recovered/Resolved]
  - Febrile neutropenia [Recovered/Resolved]
  - Hypomagnesaemia [Recovered/Resolved]
  - Hypokalaemia [Recovered/Resolved]
  - Diarrhoea [Not Recovered/Not Resolved]
